FAERS Safety Report 9326666 (Version 2)
Quarter: 2013Q3

REPORT INFORMATION
  Report Type: Spontaneous
  Country: FR (occurrence: None)
  Receive Date: 20130530
  Receipt Date: 20130819
  Transmission Date: 20140515
  Serious: Yes (Hospitalization)
  Sender: FDA-Public Use
  Company Number: SYM-2013-03344

PATIENT
  Age: 83 Year
  Sex: Male

DRUGS (19)
  1. MONO-TILDIEM [Suspect]
     Indication: LUNG DISORDER
     Route: 048
     Dates: start: 20130127, end: 20130210
  2. RISORDAN [Suspect]
     Indication: PRODUCT USED FOR UNKNOWN INDICATION
     Route: 042
     Dates: start: 20130207
  3. DIGOXINE [Suspect]
     Indication: PRODUCT USED FOR UNKNOWN INDICATION
     Route: 042
     Dates: start: 20130209, end: 20130211
  4. TRANXENE [Suspect]
     Indication: PRODUCT USED FOR UNKNOWN INDICATION
     Route: 048
     Dates: start: 20130209
  5. VANCOMYCINE [Suspect]
     Indication: LUNG DISORDER
     Route: 042
     Dates: start: 20130220, end: 20130203
  6. HYPNOMIDATE [Suspect]
     Indication: ANAESTHESIA
     Route: 042
     Dates: start: 20130209, end: 20130209
  7. LEVOFLOXACIN [Suspect]
     Indication: LUNG DISORDER
     Route: 042
     Dates: start: 20130204, end: 20130219
  8. SUXAMETHONIUM [Suspect]
     Indication: ANAESTHESIA
     Route: 042
     Dates: start: 20130209, end: 20130209
  9. MIDAZOLAM [Suspect]
     Indication: PRODUCT USED FOR UNKNOWN INDICATION
     Route: 042
     Dates: start: 20130211, end: 20130214
  10. LASILIX (FUROSEMIDE)(FUROSEMIDE) [Concomitant]
  11. DIFFU K (POTASSIUM CHLORIDE) [Concomitant]
  12. NORADRENALINE (NOREPINEPHRINE)(NOREPINEPHRINE) [Concomitant]
  13. FENTANYL (FENTANYL)(FENTANYL) [Concomitant]
  14. HEPARIN (HEPARIN)(HEPARIN) [Concomitant]
  15. AUGMENTIN [Suspect]
     Route: 042
     Dates: start: 20130128, end: 20130206
  16. FUNGIZONE [Suspect]
     Route: 042
     Dates: start: 20130206, end: 20130210
  17. CEFTRIAXONE [Suspect]
     Route: 042
     Dates: start: 20130206, end: 20130212
  18. PIPERACILLIN/TAZOBACTAM [Suspect]
     Dates: start: 20130212, end: 20130218
  19. BUDESONIDE [Suspect]
     Route: 042
     Dates: start: 20130207

REACTIONS (5)
  - Thrombocytopenia [None]
  - Gastrointestinal haemorrhage [None]
  - Anaemia [None]
  - Respiratory failure [None]
  - Cardiac failure [None]
